FAERS Safety Report 9949677 (Version 1)
Quarter: 2014Q1

REPORT INFORMATION
  Report Type: Report from Study
  Country: US (occurrence: US)
  Receive Date: 20140304
  Receipt Date: 20140304
  Transmission Date: 20141002
  Serious: No
  Sender: FDA-Public Use
  Company Number: US-ABBVIE-13P-163-1068503-00

PATIENT
  Age: 66 Year
  Sex: Female

DRUGS (10)
  1. HUMIRA [Suspect]
     Indication: RHEUMATOID ARTHRITIS
     Dosage: STARTER DOSE
     Dates: start: 20130319, end: 20130319
  2. HUMIRA [Suspect]
     Dates: start: 20130319
  3. CYMBALTA [Concomitant]
     Indication: DEPRESSION
     Route: 048
  4. CYMBALTA [Concomitant]
     Indication: ANALGESIC THERAPY
  5. HYDROCODONE [Concomitant]
     Indication: PAIN
     Dosage: 7.5/500MG AS NEEDED
     Route: 048
  6. LEFLUNOMIDE [Concomitant]
     Indication: RHEUMATOID ARTHRITIS
     Route: 048
  7. RESTASIS [Concomitant]
     Indication: LACRIMATION DECREASED
     Dosage: TWICE DAILY IN EYES
  8. ESTRADIOL [Concomitant]
     Indication: PRODUCT USED FOR UNKNOWN INDICATION
     Route: 048
  9. LEVOTHYROXINE [Concomitant]
     Indication: THYROID DISORDER
     Route: 048
  10. PREDNISONE [Concomitant]
     Indication: PAIN
     Route: 048

REACTIONS (2)
  - Pneumonia [Not Recovered/Not Resolved]
  - Arthralgia [Not Recovered/Not Resolved]
